FAERS Safety Report 18540117 (Version 1)
Quarter: 2020Q4

REPORT INFORMATION
  Report Type: Spontaneous
  Country: CN (occurrence: CN)
  Receive Date: 20201124
  Receipt Date: 20201124
  Transmission Date: 20210114
  Serious: Yes (Other)
  Sender: FDA-Public Use
  Company Number: CN-GLAXOSMITHKLINE-CN2020APC227630

PATIENT
  Age: 79 Year
  Sex: Male
  Weight: 70 kg

DRUGS (3)
  1. VENTOLIN [Suspect]
     Active Substance: ALBUTEROL SULFATE
     Indication: CHRONIC OBSTRUCTIVE PULMONARY DISEASE
     Dosage: 2.5 ML, TID
     Route: 055
     Dates: start: 20201111, end: 20201111
  2. PULMICORT RESPULES [Suspect]
     Active Substance: BUDESONIDE
     Indication: CHRONIC OBSTRUCTIVE PULMONARY DISEASE
     Dosage: 2 MG, TID
     Route: 055
     Dates: start: 20201111, end: 20201111
  3. FLUIMUCIL [Suspect]
     Active Substance: ACETYLCYSTEINE
     Indication: CHRONIC OBSTRUCTIVE PULMONARY DISEASE
     Dosage: 3 ML, TID
     Route: 055
     Dates: start: 20201111, end: 20201111

REACTIONS (5)
  - Hypercapnia [Unknown]
  - Tachypnoea [Recovering/Resolving]
  - Wheezing [Unknown]
  - Breath sounds abnormal [Unknown]
  - Oxygen saturation decreased [Recovering/Resolving]

NARRATIVE: CASE EVENT DATE: 20201111
